FAERS Safety Report 9655516 (Version 2)
Quarter: 2013Q4

REPORT INFORMATION
  Report Type: Spontaneous
  Country: US (occurrence: US)
  Receive Date: 20131029
  Receipt Date: 20131029
  Transmission Date: 20140711
  Serious: No
  Sender: FDA-Public Use
  Company Number: US-PURDUE-USA-2012-0089666

PATIENT
  Sex: Male
  Weight: 96.6 kg

DRUGS (1)
  1. OXYCONTIN (NDA 22-272) [Suspect]
     Indication: PAIN
     Dosage: 30 MG, UNK
     Route: 048

REACTIONS (1)
  - Medication residue present [Recovered/Resolved]
